FAERS Safety Report 17365496 (Version 1)
Quarter: 2020Q1

REPORT INFORMATION
  Report Type: Spontaneous
  Country: US (occurrence: US)
  Receive Date: 20200204
  Receipt Date: 20200204
  Transmission Date: 20200409
  Serious: Yes (Hospitalization, Other)
  Sender: FDA-Public Use
  Company Number: US-AMGEN-USASP2020014977

PATIENT
  Age: 71 Year
  Sex: Male

DRUGS (1)
  1. REPATHA [Suspect]
     Active Substance: EVOLOCUMAB
     Indication: BLOOD CHOLESTEROL INCREASED
     Dosage: 140 MILLIGRAM, Q2WK
     Route: 065

REACTIONS (5)
  - Device difficult to use [Unknown]
  - Device physical property issue [Unknown]
  - Wrong technique in product usage process [Unknown]
  - Bladder obstruction [Unknown]
  - Renal vein thrombosis [Unknown]

NARRATIVE: CASE EVENT DATE: 20200126
